FAERS Safety Report 19715512 (Version 1)
Quarter: 2021Q3

REPORT INFORMATION
  Report Type: Spontaneous
  Country: US (occurrence: US)
  Receive Date: 20210818
  Receipt Date: 20210818
  Transmission Date: 20211014
  Serious: Yes (Other)
  Sender: FDA-Public Use
  Company Number: US-AMGEN-USASP2021124821

PATIENT
  Sex: Male

DRUGS (3)
  1. REPATHA [Suspect]
     Active Substance: EVOLOCUMAB
     Indication: HYPERLIPIDAEMIA
     Dosage: UNK UNK, Q2WK
     Route: 065
  2. COVID?19 VACCINE [Concomitant]
     Dosage: FIRST DOSE
     Dates: start: 20210717
  3. COVID?19 VACCINE [Concomitant]
     Dosage: UNK
     Dates: start: 20210807

REACTIONS (2)
  - Diabetes mellitus [Unknown]
  - Pain in extremity [Unknown]
